FAERS Safety Report 15230698 (Version 1)
Quarter: 2018Q3

REPORT INFORMATION
  Report Type: Spontaneous
  Country: US (occurrence: US)
  Receive Date: 20180802
  Receipt Date: 20180802
  Transmission Date: 20181010
  Serious: No
  Sender: FDA-Public Use
  Company Number: US-SA-2018SA207558

PATIENT
  Age: 41 Year
  Sex: Female

DRUGS (1)
  1. XYZAL ALLERGY 24HR [Suspect]
     Active Substance: LEVOCETIRIZINE DIHYDROCHLORIDE
     Dosage: UNK, QD FOR TWO WEEK
     Dates: end: 20180726

REACTIONS (3)
  - Sneezing [Unknown]
  - Rhinorrhoea [Unknown]
  - Lacrimation increased [Unknown]
